FAERS Safety Report 6186393-6 (Version None)
Quarter: 2009Q2

REPORT INFORMATION
  Report Type: 
  Country: None (occurrence: None)
  Receive Date: 20090511
  Receipt Date: 20090505
  Transmission Date: 20091009
  Serious: No
  Sender: FDA-Public Use
  Company Number: US-BAYER-200910365BCC

PATIENT
  Age: 70 Year
  Sex: Male
  Weight: 118 kg

DRUGS (4)
  1. ALEVE (CAPLET) [Suspect]
     Indication: HEADACHE
     Dosage: TOTAL DAILY DOSE: 440 MG  UNIT DOSE: 220 MG
     Route: 048
     Dates: start: 20090130
  2. ACTOS [Concomitant]
  3. DIABETIC MEDICATION [Concomitant]
  4. BLOOD PRESSURE MEDICATION [Concomitant]

REACTIONS (2)
  - HYPOAESTHESIA FACIAL [None]
  - PARAESTHESIA [None]
